FAERS Safety Report 17209223 (Version 2)
Quarter: 2020Q1

REPORT INFORMATION
  Report Type: Spontaneous
  Country: GB (occurrence: GB)
  Receive Date: 20191227
  Receipt Date: 20200109
  Transmission Date: 20200409
  Serious: Yes (Death, Hospitalization)
  Sender: FDA-Public Use
  Company Number: GB-MYLANLABS-2019M1128094

PATIENT
  Age: 54 Year
  Sex: Male

DRUGS (1)
  1. CLOZARIL [Suspect]
     Active Substance: CLOZAPINE
     Indication: SCHIZOPHRENIA
     Dosage: UNK
     Route: 048
     Dates: start: 20050730

REACTIONS (2)
  - Loss of consciousness [Unknown]
  - Death [Fatal]

NARRATIVE: CASE EVENT DATE: 20191224
